FAERS Safety Report 8771744 (Version 1)
Quarter: 2012Q4

REPORT INFORMATION
  Report Type: 
  Country: US (occurrence: US)
  Receive Date: 20120830
  Receipt Date: 20120830
  Transmission Date: 20130627
  Serious: Yes (Other)
  Sender: FDA-Public Use
  Company Number: US-ELI_LILLY_AND_COMPANY-US201208008840

PATIENT
  Sex: Female

DRUGS (3)
  1. FORTEO [Suspect]
     Indication: OSTEOPOROSIS
     Dosage: UNK UNK, unknown
     Dates: start: 2006
  2. FORTEO [Suspect]
     Dosage: UNK UNK, unknown
     Dates: start: 201205
  3. CHEMOTHERAPEUTICS [Concomitant]

REACTIONS (2)
  - Hip fracture [Unknown]
  - Arthropathy [Unknown]
